FAERS Safety Report 6356678-9 (Version None)
Quarter: 2009Q3

REPORT INFORMATION
  Report Type: 
  Country: None (occurrence: None)
  Receive Date: 20090910
  Receipt Date: 20090910
  Transmission Date: 20100115
  Serious: Yes (Hospitalization)
  Sender: FDA-Public Use
  Company Number: None

PATIENT
  Age: 46 Year
  Sex: Female
  Weight: 88.4514 kg

DRUGS (1)
  1. ALLI [Suspect]
     Indication: WEIGHT CONTROL
     Dosage: ONE PILL 3 TIMES A DAY PO
     Route: 048
     Dates: start: 20081101, end: 20090106

REACTIONS (2)
  - ASTHENIA [None]
  - HEPATIC ENZYME INCREASED [None]
